FAERS Safety Report 5849528-8 (Version None)
Quarter: 2008Q3

REPORT INFORMATION
  Report Type: 
  Country: None (occurrence: None)
  Receive Date: 20080819
  Receipt Date: 20080808
  Transmission Date: 20090109
  Serious: Yes (Life-Threatening, Hospitalization)
  Sender: FDA-Public Use
  Company Number: B0532496A

PATIENT
  Age: 74 Year
  Sex: Male

DRUGS (5)
  1. ZINNAT INJECTABLE [Suspect]
     Indication: ANTIBIOTIC PROPHYLAXIS
     Route: 042
     Dates: start: 20080717, end: 20080717
  2. PLASMION [Suspect]
     Indication: FLUID REPLACEMENT
     Route: 042
     Dates: start: 20080717, end: 20080717
  3. NIMBEX [Concomitant]
     Route: 042
     Dates: start: 20080717, end: 20080717
  4. SUFENTA [Concomitant]
     Route: 042
     Dates: start: 20080717, end: 20080717
  5. PROPOFOL [Concomitant]
     Route: 042
     Dates: start: 20080717, end: 20080717

REACTIONS (3)
  - ANAPHYLACTIC SHOCK [None]
  - BRONCHOSPASM [None]
  - SHOCK [None]
